FAERS Safety Report 16173681 (Version 2)
Quarter: 2019Q4

REPORT INFORMATION
  Report Type: Spontaneous
  Country: GB (occurrence: GB)
  Receive Date: 20190409
  Receipt Date: 20191125
  Transmission Date: 20200122
  Serious: Yes (Hospitalization, Other)
  Sender: FDA-Public Use
  Company Number: GB-STRIDES ARCOLAB LIMITED-2019SP002947

PATIENT
  Age: 35 Year
  Sex: Female

DRUGS (8)
  1. PARACETAMOL [Suspect]
     Active Substance: ACETAMINOPHEN
     Indication: BACK PAIN
     Dosage: UPTO 7.5 G OF PER DAY
     Route: 065
  2. RENNIE PEPPERMINT [Suspect]
     Active Substance: CALCIUM CARBONATE\MAGNESIUM CARBONATE
     Indication: GASTROOESOPHAGEAL REFLUX DISEASE
     Dosage: UP TO 72 TABLETS
     Route: 048
  3. GAVISCON                           /01279101/ [Suspect]
     Active Substance: ALUMINUM HYDROXIDE \CALCIUM CARBONATE\SODIUM ALGINATE\SODIUM BICARBONATE
     Indication: PRODUCT USED FOR UNKNOWN INDICATION
     Dosage: 600 MILLILITER, ONCE A WEEK
     Route: 065
  4. IBUPROFEN. [Suspect]
     Active Substance: IBUPROFEN
     Indication: ANALGESIC THERAPY
     Dosage: 6 GRAM, QD
     Route: 065
  5. RENNIE PEPPERMINT [Suspect]
     Active Substance: CALCIUM CARBONATE\MAGNESIUM CARBONATE
     Indication: ANTACID THERAPY
     Dosage: 72 DOSAGE FORM
     Route: 048
     Dates: start: 201702, end: 201710
  6. GAVISCON ORIGINAL ANTISEED RELIEF [Suspect]
     Active Substance: CALCIUM CARBONATE\SODIUM ALGINATE\SODIUM BICARBONATE
     Indication: GASTROOESOPHAGEAL REFLUX DISEASE
     Dosage: 600 ML, WEEK
     Route: 048
     Dates: start: 201702, end: 201710
  7. PARACETAMOL [Suspect]
     Active Substance: ACETAMINOPHEN
     Dosage: 7.5 GRAM, QD
     Route: 065
  8. IBUPROFEN. [Suspect]
     Active Substance: IBUPROFEN
     Indication: BACK PAIN
     Dosage: UP TO 6 G PER DAY
     Route: 065

REACTIONS (10)
  - Drug abuse [Recovered/Resolved]
  - Coagulopathy [Recovered/Resolved]
  - Gastric ulcer [Recovered/Resolved]
  - Abdominal pain upper [Recovered/Resolved]
  - Self-medication [Recovered/Resolved]
  - Hepatic function abnormal [Recovered/Resolved]
  - Abdominal tenderness [Recovered/Resolved]
  - Epigastric discomfort [Recovered/Resolved]
  - Overdose [Recovered/Resolved]
  - Vomiting [Recovered/Resolved]

NARRATIVE: CASE EVENT DATE: 2017
